FAERS Safety Report 7812613-5 (Version None)
Quarter: 2011Q4

REPORT INFORMATION
  Report Type: 
  Country: None (occurrence: None)
  Receive Date: 20111013
  Receipt Date: 20110712
  Transmission Date: 20120403
  Serious: No
  Sender: FDA-Public Use
  Company Number: US-NOVEN-11US002779

PATIENT
  Age: 62 Year
  Sex: Male

DRUGS (2)
  1. CODEINE SULFATE [Concomitant]
     Indication: PAIN
     Dosage: UNK
  2. FENTANYL [Suspect]
     Indication: PAIN
     Dosage: 100 UG, EVERY 3 DAYS
     Route: 062
     Dates: start: 20110301

REACTIONS (5)
  - INSOMNIA [None]
  - CONSTIPATION [None]
  - INADEQUATE ANALGESIA [None]
  - PRODUCT QUALITY ISSUE [None]
  - DECREASED APPETITE [None]
